FAERS Safety Report 15037492 (Version 2)
Quarter: 2018Q3

REPORT INFORMATION
  Report Type: Spontaneous
  Country: ES (occurrence: ES)
  Receive Date: 20180620
  Receipt Date: 20180723
  Transmission Date: 20181010
  Serious: Yes (Life-Threatening, Hospitalization)
  Sender: FDA-Public Use
  Company Number: ES-TEVA-2018-ES-909020

PATIENT
  Age: 63 Year
  Sex: Female
  Weight: 70 kg

DRUGS (5)
  1. METFORMINA [Suspect]
     Active Substance: METFORMIN HYDROCHLORIDE
     Indication: TYPE 2 DIABETES MELLITUS
     Route: 048
     Dates: start: 201601, end: 20180204
  2. GEMFIBROZILO (637A) [Concomitant]
     Indication: HYPERTRIGLYCERIDAEMIA
     Dosage: 900 MILLIGRAM DAILY;
     Route: 048
     Dates: start: 201710, end: 20180204
  3. PRAVASTATINA SODICA (7192SO) [Suspect]
     Active Substance: PRAVASTATIN SODIUM
     Indication: DYSLIPIDAEMIA
     Dosage: 20 MILLIGRAM DAILY;
     Route: 048
     Dates: start: 201703, end: 20180204
  4. LISINOPRIL HIDROCLOROTIAZIDA CINFA 20 MG/12, 5 MG COMPRIMIDOS EFG, 28 [Suspect]
     Active Substance: HYDROCHLOROTHIAZIDE\LISINOPRIL
     Indication: RENOVASCULAR HYPERTENSION
     Route: 048
     Dates: start: 201601, end: 20180204
  5. SALAZOPYRINA  500 MG COMPRIMIDOS, 50 COMPRIMIDOS [Suspect]
     Active Substance: SULFASALAZINE
     Indication: ARTHRITIS
     Route: 048
     Dates: start: 20160127, end: 20180204

REACTIONS (1)
  - Acute interstitial pneumonitis [Recovered/Resolved]

NARRATIVE: CASE EVENT DATE: 20180129
